FAERS Safety Report 5675413-0 (Version None)
Quarter: 2008Q1

REPORT INFORMATION
  Report Type: 
  Country: None (occurrence: None)
  Receive Date: 20080320
  Receipt Date: 20080318
  Transmission Date: 20080703
  Serious: Yes (Death, Other)
  Sender: FDA-Public Use
  Company Number: BE-ABBOTT-08P-013-0443028-00

PATIENT
  Age: 58 Year
  Sex: Male

DRUGS (3)
  1. VALPROATE SODIUM [Suspect]
     Indication: STATUS EPILEPTICUS
     Dosage: NOT REPORTED
  2. PHENYTOIN [Suspect]
     Indication: STATUS EPILEPTICUS
     Dosage: NOT REPORTED
  3. LORAZEPAM [Concomitant]
     Indication: STATUS EPILEPTICUS
     Dosage: NOT REPORTED

REACTIONS (1)
  - ANTICONVULSANT DRUG LEVEL INCREASED [None]
